FAERS Safety Report 14707904 (Version 9)
Quarter: 2021Q3

REPORT INFORMATION
  Report Type: Spontaneous
  Country: US (occurrence: US)
  Receive Date: 20180403
  Receipt Date: 20210908
  Transmission Date: 20211014
  Serious: Yes (Hospitalization, Other)
  Sender: FDA-Public Use
  Company Number: US-PFIZER INC-2018133394

PATIENT
  Age: 66 Year
  Sex: Female

DRUGS (3)
  1. LYRICA [Suspect]
     Active Substance: PREGABALIN
     Indication: STATUS EPILEPTICUS
     Dosage: 100 MG, 4X/DAY
     Route: 048
     Dates: start: 20190909
  2. LYRICA [Suspect]
     Active Substance: PREGABALIN
     Indication: SIMPLE PARTIAL SEIZURES
     Dosage: UNK
  3. LYRICA [Suspect]
     Active Substance: PREGABALIN
     Indication: EPILEPSY
     Dosage: 100 MG, 4X/DAY (FOUR TIMES DAILY)
     Route: 048
     Dates: start: 20190228

REACTIONS (2)
  - Influenza [Recovering/Resolving]
  - Pneumonia [Recovering/Resolving]
